FAERS Safety Report 10911192 (Version 1)
Quarter: 2015Q1

REPORT INFORMATION
  Report Type: Report from Study
  Country: US (occurrence: US)
  Receive Date: 20150312
  Receipt Date: 20150312
  Transmission Date: 20150721
  Serious: Yes (Other)
  Sender: FDA-Public Use
  Company Number: US-OTSUKA-US-2015-11030

PATIENT

DRUGS (27)
  1. MUCINEX [Concomitant]
     Active Substance: GUAIFENESIN
     Indication: SINUSITIS
     Dosage: 1 TAB, PRN
     Route: 048
     Dates: start: 2007
  2. BLINDED OPC-41061 [Suspect]
     Active Substance: TOLVAPTAN
     Dosage: 15 MG MILLIGRAM(S), QD
     Route: 048
     Dates: start: 20141031, end: 20141103
  3. PLACEBO [Suspect]
     Active Substance: UNSPECIFIED INGREDIENT
     Dosage: 45 MG MILLIGRAM(S), QD
     Route: 048
     Dates: start: 20141104, end: 20141106
  4. BLINDED OPC-41061 [Suspect]
     Active Substance: TOLVAPTAN
     Dosage: 30 MG MILLIGRAM(S), QD
     Route: 048
     Dates: start: 20141107, end: 20141112
  5. PLACEBO [Suspect]
     Active Substance: UNSPECIFIED INGREDIENT
     Dosage: 90 MG MILLIGRAM(S), QD
     Route: 048
     Dates: start: 20141113, end: 20141114
  6. BLINDED OPC-41061 [Suspect]
     Active Substance: TOLVAPTAN
     Dosage: 30 MG MILLIGRAM(S), QD
     Route: 048
     Dates: start: 20141115, end: 20141130
  7. VITAMIN D3 [Concomitant]
     Active Substance: CHOLECALCIFEROL
     Indication: MINERAL METABOLISM DISORDER
     Dosage: 50000 IU, QW
     Route: 048
     Dates: start: 20140403
  8. PLACEBO [Suspect]
     Active Substance: UNSPECIFIED INGREDIENT
     Indication: CONGENITAL CYSTIC KIDNEY DISEASE
     Dosage: 0/0 MG QD
     Route: 048
     Dates: start: 20141023, end: 20141031
  9. PLACEBO [Suspect]
     Active Substance: UNSPECIFIED INGREDIENT
     Dosage: 30 MG MILLIGRAM(S), QD
     Route: 048
     Dates: start: 20141031, end: 20141103
  10. PLACEBO [Suspect]
     Active Substance: UNSPECIFIED INGREDIENT
     Dosage: 60 MG MILLIGRAM(S), QD
     Route: 048
     Dates: start: 20141107, end: 20141112
  11. PLACEBO [Suspect]
     Active Substance: UNSPECIFIED INGREDIENT
     Dosage: 30 MG MILLIGRAM(S), QD
     Route: 048
     Dates: start: 20141107, end: 20141112
  12. BLINDED OPC-41061 [Suspect]
     Active Substance: TOLVAPTAN
     Dosage: 60 MG MILLIGRAM(S), QD
     Route: 048
     Dates: start: 20141115, end: 20141130
  13. FERROUS SULFATE [Concomitant]
     Active Substance: FERROUS SULFATE\FERROUS SULFATE, DRIED
     Indication: ANAEMIA
     Dosage: 325 MG MILLIGRAM(S), BID
     Route: 048
     Dates: start: 20130118
  14. POTASSIUM CITRATE. [Concomitant]
     Active Substance: POTASSIUM CITRATE
     Indication: NEPHROLITHIASIS
     Dosage: 1080 MG MILLIGRAM(S), TID
     Route: 048
     Dates: start: 2011
  15. BLINDED OPC-41061 [Suspect]
     Active Substance: TOLVAPTAN
     Dosage: 30 MG MILLIGRAM(S), QD
     Route: 048
     Dates: start: 20141031, end: 20141103
  16. BLINDED OPC-41061 [Suspect]
     Active Substance: TOLVAPTAN
     Dosage: 90 MG MILLIGRAM(S), QD
     Route: 048
     Dates: start: 20141113, end: 20141114
  17. PLACEBO [Suspect]
     Active Substance: UNSPECIFIED INGREDIENT
     Dosage: 15 MG MILLIGRAM(S), QD
     Route: 048
     Dates: start: 20141104, end: 20141106
  18. PLACEBO [Suspect]
     Active Substance: UNSPECIFIED INGREDIENT
     Dosage: 15 MG MILLIGRAM(S), QD
     Route: 048
     Dates: start: 20141031, end: 20141103
  19. BLINDED OPC-41061 [Suspect]
     Active Substance: TOLVAPTAN
     Dosage: 45 MG MILLIGRAM(S), QD
     Route: 048
     Dates: start: 20141104, end: 20141106
  20. BLINDED OPC-41061 [Suspect]
     Active Substance: TOLVAPTAN
     Dosage: 15 MG MILLIGRAM(S), QD
     Route: 048
     Dates: start: 20141104, end: 20141106
  21. BLINDED OPC-41061 [Suspect]
     Active Substance: TOLVAPTAN
     Dosage: 30 MG MILLIGRAM(S), QD
     Route: 048
     Dates: start: 20141113, end: 20141114
  22. PLACEBO [Suspect]
     Active Substance: UNSPECIFIED INGREDIENT
     Dosage: 60 MG MILLIGRAM(S), QD
     Route: 048
     Dates: start: 20141115, end: 20141130
  23. LOSARTAN [Concomitant]
     Active Substance: LOSARTAN
     Indication: HYPERTENSION
     Dosage: 50 MG MILLIGRAM(S), QD
     Route: 048
     Dates: start: 20140403
  24. BLINDED OPC-41061 [Suspect]
     Active Substance: TOLVAPTAN
     Indication: CONGENITAL CYSTIC KIDNEY DISEASE
     Dosage: 0/0 MG QD
     Route: 048
     Dates: start: 20141023, end: 20141031
  25. BLINDED OPC-41061 [Suspect]
     Active Substance: TOLVAPTAN
     Dosage: 60 MG MILLIGRAM(S), QD
     Route: 048
     Dates: start: 20141107, end: 20141112
  26. PLACEBO [Suspect]
     Active Substance: UNSPECIFIED INGREDIENT
     Dosage: 30 MG MILLIGRAM(S), QD
     Route: 048
     Dates: start: 20141113, end: 20141114
  27. PLACEBO [Suspect]
     Active Substance: UNSPECIFIED INGREDIENT
     Dosage: 30 MG MILLIGRAM(S), QD
     Route: 048
     Dates: start: 20141115, end: 20141130

REACTIONS (1)
  - Insomnia [Recovered/Resolved]

NARRATIVE: CASE EVENT DATE: 20141106
